FAERS Safety Report 13802518 (Version 1)
Quarter: 2017Q3

REPORT INFORMATION
  Report Type: Spontaneous
  Country: PL (occurrence: PL)
  Receive Date: 20170728
  Receipt Date: 20170728
  Transmission Date: 20171127
  Serious: Yes (Hospitalization)
  Sender: FDA-Public Use
  Company Number: PL-TEVA-788814ACC

PATIENT
  Age: 10 Year
  Sex: Male
  Weight: 30 kg

DRUGS (1)
  1. VINCRISTINE [Suspect]
     Active Substance: VINCRISTINE
     Indication: LYMPHOCYTIC LEUKAEMIA
     Route: 042
     Dates: start: 20170216, end: 20170216

REACTIONS (5)
  - Hypertension [Recovered/Resolved]
  - Seizure [Recovered/Resolved]
  - Inappropriate antidiuretic hormone secretion [Recovered/Resolved]
  - Polyneuropathy [Recovered/Resolved]
  - Ileus paralytic [Recovered/Resolved]

NARRATIVE: CASE EVENT DATE: 20170220
